FAERS Safety Report 5858478-2 (Version None)
Quarter: 2008Q3

REPORT INFORMATION
  Report Type: 
  Country: None (occurrence: None)
  Receive Date: 20080826
  Receipt Date: 20080826
  Transmission Date: 20090109
  Serious: Yes (Hospitalization)
  Sender: FDA-Public Use
  Company Number: KZ-JNJFOC-20080804063

PATIENT
  Sex: Female
  Weight: 67 kg

DRUGS (2)
  1. PALIPERIDONE [Suspect]
     Indication: SCHIZOPHRENIA
  2. LEVOPROMAZINE [Suspect]
     Indication: SCHIZOPHRENIA

REACTIONS (3)
  - AKATHISIA [None]
  - ANXIETY [None]
  - INSOMNIA [None]
